FAERS Safety Report 5019757-4 (Version None)
Quarter: 2006Q2

REPORT INFORMATION
  Report Type: 
  Country: None (occurrence: None)
  Receive Date: 20060601
  Receipt Date: 20060519
  Transmission Date: 20061013
  Serious: Yes (Other)
  Sender: FDA-Public Use
  Company Number: 2006065536

PATIENT
  Age: 18 Year
  Sex: Male

DRUGS (2)
  1. ZYVOX [Suspect]
     Indication: ILL-DEFINED DISORDER
     Dosage: INTRAVENOUS
     Dates: start: 20060515, end: 20060501
  2. PHENYTOIN [Concomitant]

REACTIONS (1)
  - DERMATITIS EXFOLIATIVE [None]
